FAERS Safety Report 16609349 (Version 1)
Quarter: 2019Q3

REPORT INFORMATION
  Report Type: Spontaneous
  Country: US (occurrence: US)
  Receive Date: 20190607
  Receipt Date: 20190607
  Transmission Date: 20191004
  Serious: No
  Sender: FDA-Public Use
  Company Number: None

PATIENT
  Sex: Male

DRUGS (11)
  1. GLIMEPIRIDE TAB [Concomitant]
  2. METFORMIN TAB [Concomitant]
  3. OMEPRAZOLE TAB [Concomitant]
  4. PREDNISONE TAB [Concomitant]
     Active Substance: PREDNISONE
  5. ASPIRIN LOW TAB [Concomitant]
  6. BENADRYL ALG TAB [Concomitant]
  7. LIPITOR TAB [Concomitant]
  8. LOSARTAN POT TAB [Concomitant]
  9. ESBRIET [Suspect]
     Active Substance: PIRFENIDONE
     Indication: INTERSTITIAL LUNG DISEASE
     Route: 048
     Dates: start: 20190419
  10. ATENOLOL TAB [Concomitant]
     Active Substance: ATENOLOL
  11. FLONASE ALGY SPR [Concomitant]

REACTIONS (2)
  - Haematemesis [None]
  - Faeces discoloured [None]
